FAERS Safety Report 5304676-6 (Version None)
Quarter: 2007Q2

REPORT INFORMATION
  Report Type: 
  Country: None (occurrence: None)
  Receive Date: 20070416
  Receipt Date: 20070402
  Transmission Date: 20071010
  Serious: Yes (Hospitalization)
  Sender: FDA-Public Use
  Company Number: MEDI-0004332

PATIENT
  Age: 8 Month
  Sex: Male
  Weight: 10 kg

DRUGS (25)
  1. SYNAGIS [Suspect]
     Indication: ANTIVIRAL PROPHYLAXIS
     Dosage: SEE IMAGE
     Route: 030
     Dates: start: 20051005, end: 20051102
  2. SYNAGIS [Suspect]
     Indication: BECKWITH-WIEDEMANN SYNDROME
     Dosage: SEE IMAGE
     Route: 030
     Dates: start: 20051005, end: 20051102
  3. SYNAGIS [Suspect]
     Indication: TRACHEOMALACIA
     Dosage: SEE IMAGE
     Route: 030
     Dates: start: 20051005, end: 20051102
  4. SYNAGIS [Suspect]
     Indication: ANTIVIRAL PROPHYLAXIS
     Dosage: SEE IMAGE
     Route: 030
     Dates: start: 20060208, end: 20060208
  5. SYNAGIS [Suspect]
     Indication: BECKWITH-WIEDEMANN SYNDROME
     Dosage: SEE IMAGE
     Route: 030
     Dates: start: 20060208, end: 20060208
  6. SYNAGIS [Suspect]
     Indication: TRACHEOMALACIA
     Dosage: SEE IMAGE
     Route: 030
     Dates: start: 20060208, end: 20060208
  7. SYNAGIS [Suspect]
     Indication: ANTIVIRAL PROPHYLAXIS
     Dosage: SEE IMAGE
     Route: 030
     Dates: start: 20050111
  8. SYNAGIS [Suspect]
     Indication: BECKWITH-WIEDEMANN SYNDROME
     Dosage: SEE IMAGE
     Route: 030
     Dates: start: 20050111
  9. SYNAGIS [Suspect]
     Indication: TRACHEOMALACIA
     Dosage: SEE IMAGE
     Route: 030
     Dates: start: 20050111
  10. SYNAGIS [Suspect]
     Indication: ANTIVIRAL PROPHYLAXIS
     Dosage: SEE IMAGE
     Route: 030
     Dates: start: 20051005
  11. SYNAGIS [Suspect]
     Indication: BECKWITH-WIEDEMANN SYNDROME
     Dosage: SEE IMAGE
     Route: 030
     Dates: start: 20051005
  12. SYNAGIS [Suspect]
     Indication: TRACHEOMALACIA
     Dosage: SEE IMAGE
     Route: 030
     Dates: start: 20051005
  13. SYNAGIS [Suspect]
     Indication: ANTIVIRAL PROPHYLAXIS
     Dosage: SEE IMAGE
     Route: 030
     Dates: start: 20051207
  14. SYNAGIS [Suspect]
     Indication: BECKWITH-WIEDEMANN SYNDROME
     Dosage: SEE IMAGE
     Route: 030
     Dates: start: 20051207
  15. SYNAGIS [Suspect]
     Indication: TRACHEOMALACIA
     Dosage: SEE IMAGE
     Route: 030
     Dates: start: 20051207
  16. SYNAGIS [Suspect]
  17. SYNAGIS [Suspect]
  18. SYNAGIS [Concomitant]
  19. SYNAGIS [Concomitant]
  20. SYNAGIS [Suspect]
  21. SYNAGIS [Suspect]
  22. SYNAGIS [Suspect]
  23. DOMPERIDONE (DOMPERIDONE) [Concomitant]
  24. COTRIMOXAZOLE/SULFAMETHOXAZOLE/TRIMETHOPRIM (SULFAMETHOXAZOLE, TRIMETH [Concomitant]
  25. CHOLECALCIFEROL SODIUM FLUORURE (COLECALCIFEROL) [Concomitant]

REACTIONS (2)
  - BRONCHIOLITIS [None]
  - INGUINAL HERNIA [None]
